FAERS Safety Report 9387514 (Version 2)
Quarter: 2013Q3

REPORT INFORMATION
  Report Type: Spontaneous
  Country: US (occurrence: US)
  Receive Date: 20130708
  Receipt Date: 20130827
  Transmission Date: 20140515
  Serious: No
  Sender: FDA-Public Use
  Company Number: US-B.I. PHARMACEUTICALS,INC./RIDGEFIELD-2013-BI-19050BP

PATIENT
  Age: 85 Year
  Sex: Female

DRUGS (1)
  1. ATROVENT [Suspect]
     Indication: ASTHMA
     Dosage: 68 MCG
     Route: 055
     Dates: start: 20130629

REACTIONS (4)
  - Cough [Recovered/Resolved]
  - Inappropriate schedule of drug administration [Not Recovered/Not Resolved]
  - Product quality issue [Recovered/Resolved]
  - Off label use [Not Recovered/Not Resolved]
